FAERS Safety Report 4925056-9 (Version None)
Quarter: 2006Q1

REPORT INFORMATION
  Report Type: 
  Country: None (occurrence: None)
  Receive Date: 20060222
  Receipt Date: 20060208
  Transmission Date: 20060701
  Serious: Yes (Death)
  Sender: FDA-Public Use
  Company Number: 2006US-01620

PATIENT

DRUGS (1)
  1. ISOTRETINOIN [Suspect]

REACTIONS (1)
  - COMPLETED SUICIDE [None]
